FAERS Safety Report 8913376 (Version 1)
Quarter: 2012Q4

REPORT INFORMATION
  Report Type: Spontaneous
  Country: US (occurrence: None)
  Receive Date: 20121114
  Receipt Date: 20121114
  Transmission Date: 20130627
  Serious: Yes (Other)
  Sender: FDA-Public Use
  Company Number: 1473629

PATIENT
  Age: 20 Year
  Sex: Female

DRUGS (8)
  1. FENTANYL CITRATE [Suspect]
     Dosage: 100 mcg2ml, not reported
     Dates: start: 20120929, end: 20120929
  2. LIDOCAINE HCL [Suspect]
     Indication: BLEEDING
     Route: 019
     Dates: start: 20120929, end: 20120929
  3. MIDAZOLAM [Suspect]
     Dosage: 2mg/ml, not reported, unknown, unknown
     Dates: start: 20120929, end: 20120929
  4. VASOPRESSIN [Suspect]
     Indication: BLEEDING
     Route: 019
     Dates: start: 20120929, end: 20120929
  5. VASOPRESSIN [Suspect]
     Indication: INDUCED ABORTION
     Route: 019
     Dates: start: 20120929, end: 20120929
  6. VASOPRESSIN [Suspect]
     Indication: BLEEDING
     Route: 019
     Dates: start: 20120929, end: 20120929
  7. VASOPRESSIN [Suspect]
     Indication: INDUCED ABORTION
     Route: 019
     Dates: start: 20120929, end: 20120929
  8. SODIUM BICARBONATE [Suspect]
     Indication: BLEEDING
     Route: 019
     Dates: start: 20120929, end: 20120929

REACTIONS (5)
  - Off label use [None]
  - Grand mal convulsion [None]
  - Unresponsive to stimuli [None]
  - Cyanosis [None]
  - Oxygen saturation decreased [None]
